FAERS Safety Report 19241087 (Version 1)
Quarter: 2021Q2

REPORT INFORMATION
  Report Type: Spontaneous
  Country: US (occurrence: US)
  Receive Date: 20210510
  Receipt Date: 20210510
  Transmission Date: 20210717
  Serious: Yes (Other)
  Sender: FDA-Public Use
  Company Number: None

PATIENT
  Age: 8 Year
  Sex: Male
  Weight: 21.6 kg

DRUGS (3)
  1. ESCITALOPRAM [Concomitant]
     Active Substance: ESCITALOPRAM OXALATE
  2. METHYLPHENIDATE 27MG ER OSM TABLET [Suspect]
     Active Substance: METHYLPHENIDATE
     Indication: IMPULSIVE BEHAVIOUR
     Dosage: ?          QUANTITY:1 TABLET(S);?
     Route: 048
     Dates: start: 20210501
  3. METHYLPHENIDATE 27MG ER OSM TABLET [Suspect]
     Active Substance: METHYLPHENIDATE
     Indication: ATTENTION DEFICIT HYPERACTIVITY DISORDER
     Dosage: ?          QUANTITY:1 TABLET(S);?
     Route: 048
     Dates: start: 20210501

REACTIONS (3)
  - Product substitution issue [None]
  - Aggression [None]
  - Abnormal behaviour [None]

NARRATIVE: CASE EVENT DATE: 20210505
